FAERS Safety Report 6863340-2 (Version None)
Quarter: 2010Q3

REPORT INFORMATION
  Report Type: 
  Country: None (occurrence: None)
  Receive Date: 20100721
  Receipt Date: 20100716
  Transmission Date: 20110219
  Serious: Yes (Hospitalization, Other)
  Sender: FDA-Public Use
  Company Number: HQWYE969809JUL04

PATIENT
  Sex: Female

DRUGS (3)
  1. PREMARIN [Suspect]
     Dosage: UNKNOWN
     Route: 048
     Dates: start: 19890101
  2. MEDROXYPROGESTERONE ACETATE [Suspect]
     Dosage: UNKNOWN
     Dates: start: 19890101
  3. PROVERA [Suspect]
     Dosage: UNKNOWN
     Dates: start: 19890101

REACTIONS (1)
  - BREAST CANCER METASTATIC [None]
